FAERS Safety Report 19259506 (Version 8)
Quarter: 2023Q4

REPORT INFORMATION
  Report Type: Spontaneous
  Country: US (occurrence: US)
  Receive Date: 20210514
  Receipt Date: 20231128
  Transmission Date: 20240110
  Serious: Yes (Hospitalization, Other)
  Sender: FDA-Public Use
  Company Number: US-PFIZER INC-2021305866

PATIENT
  Age: 87 Year
  Sex: Male
  Weight: 100.7 kg

DRUGS (6)
  1. VYNDAMAX [Suspect]
     Active Substance: TAFAMIDIS
     Indication: Cardiac amyloidosis
     Dosage: 61 MG, 1X/DAY
     Route: 048
     Dates: start: 20210425
  2. VYNDAMAX [Suspect]
     Active Substance: TAFAMIDIS
     Indication: Amyloidosis
  3. TRAMADOL [Concomitant]
     Active Substance: TRAMADOL\TRAMADOL HYDROCHLORIDE
     Indication: Pain
     Dosage: 1 EVERY 8 HOURS, BUT ONLY TAKES 1 EVERY 2-3 DAYS AS NEEDED
  4. ENTRESTO [Concomitant]
     Active Substance: SACUBITRIL\VALSARTAN
     Indication: Cardiac disorder
     Dosage: 24/26MG TAB ONCE IN THE MORNING AND ONCE AT NIGHT
     Dates: start: 20180925
  5. XARELTO [Concomitant]
     Active Substance: RIVAROXABAN
     Indication: Blood disorder
     Dosage: 20 MG
     Dates: start: 20171101
  6. XARELTO [Concomitant]
     Active Substance: RIVAROXABAN
     Indication: Cardiac disorder
     Dosage: 15 MG, 1X/DAY
     Dates: start: 20210830

REACTIONS (14)
  - Lumbar spinal stenosis [Unknown]
  - Condition aggravated [Unknown]
  - Haemorrhage [Unknown]
  - Pain in extremity [Unknown]
  - Rash [Unknown]
  - Petechiae [Unknown]
  - Pruritus [Unknown]
  - Decreased appetite [Unknown]
  - Fatigue [Unknown]
  - Body height decreased [Unknown]
  - Gait disturbance [Unknown]
  - Back pain [Unknown]
  - Paraesthesia [Unknown]
  - Carpal tunnel syndrome [Unknown]
